FAERS Safety Report 14333220 (Version 2)
Quarter: 2018Q1

REPORT INFORMATION
  Report Type: Spontaneous
  Country: CH (occurrence: CH)
  Receive Date: 20171228
  Receipt Date: 20180209
  Transmission Date: 20180509
  Serious: Yes (Other)
  Sender: FDA-Public Use
  Company Number: CH-ASTRAZENECA-2017SF31340

PATIENT
  Age: 676 Month
  Sex: Female

DRUGS (5)
  1. TAGRISSO [Suspect]
     Active Substance: OSIMERTINIB
     Indication: LUNG ADENOCARCINOMA
     Route: 048
  2. BACTRIM [Concomitant]
     Active Substance: SULFAMETHOXAZOLE\TRIMETHOPRIM
     Dates: start: 201710
  3. TAGRISSO [Suspect]
     Active Substance: OSIMERTINIB
     Indication: LUNG ADENOCARCINOMA
     Route: 048
     Dates: start: 201707
  4. BELOC ZOK [Concomitant]
     Active Substance: METOPROLOL SUCCINATE
     Dates: start: 2016
  5. VIREAD [Concomitant]
     Active Substance: TENOFOVIR DISOPROXIL FUMARATE
     Indication: HEPATITIS B
     Dates: start: 201710

REACTIONS (2)
  - Pneumocystis jirovecii pneumonia [Unknown]
  - Hepatitis B reactivation [Unknown]

NARRATIVE: CASE EVENT DATE: 201708
